FAERS Safety Report 24097199 (Version 3)
Quarter: 2024Q3

REPORT INFORMATION
  Report Type: Spontaneous
  Country: ES (occurrence: ES)
  Receive Date: 20240716
  Receipt Date: 20240802
  Transmission Date: 20241017
  Serious: Yes (Hospitalization, Other)
  Sender: HIKMA
  Company Number: 2023REP00184; 5002-0047

PATIENT
  Age: 68 Year
  Sex: Female
  Weight: 50.1 kg

DRUGS (4)
  1. LEUCOVORIN CALCIUM [Suspect]
     Active Substance: LEUCOVORIN CALCIUM
     Indication: Neoplasm
     Dosage: 615 MILLIGRAM, SINGLE
     Route: 042
     Dates: start: 20231025, end: 20231025
  2. FLUOROURACIL [Suspect]
     Active Substance: FLUOROURACIL
     Indication: Adenocarcinoma of colon
     Dosage: 3695 MILLIGRAM, SINGLE
     Route: 042
     Dates: start: 20231025, end: 20231027
  3. IRINOTECAN [Suspect]
     Active Substance: IRINOTECAN
     Dosage: NOT APPLICABLE (NOT HIKMA^S SUSPECT)
     Dates: start: 20231025
  4. IRINOTECAN HYDROCHLORIDE [Suspect]
     Active Substance: IRINOTECAN HYDROCHLORIDE
     Indication: Adenocarcinoma of colon
     Dosage: 275 MILLIGRAM, SINGLE
     Route: 042
     Dates: start: 20231025, end: 20231025

REACTIONS (1)
  - Pancreatitis [Recovered/Resolved]

NARRATIVE: CASE EVENT DATE: 20231028
